FAERS Safety Report 25357685 (Version 1)
Quarter: 2025Q2

REPORT INFORMATION
  Report Type: Report from Study
  Country: AE (occurrence: AE)
  Receive Date: 20250526
  Receipt Date: 20250526
  Transmission Date: 20250716
  Serious: Yes (Other)
  Sender: ROCHE
  Company Number: AE-ROCHE-10000288624

PATIENT
  Sex: Female

DRUGS (5)
  1. PHESGO [Suspect]
     Active Substance: HYALURONIDASE-ZZXF\PERTUZUMAB\TRASTUZUMAB
     Indication: Product used for unknown indication
     Route: 065
     Dates: start: 202103, end: 202107
  2. PHESGO [Suspect]
     Active Substance: HYALURONIDASE-ZZXF\PERTUZUMAB\TRASTUZUMAB
     Route: 065
     Dates: start: 202108, end: 202211
  3. PHESGO [Suspect]
     Active Substance: HYALURONIDASE-ZZXF\PERTUZUMAB\TRASTUZUMAB
     Route: 065
     Dates: start: 202211, end: 202304
  4. CAPECITABINE [Suspect]
     Active Substance: CAPECITABINE
     Indication: Product used for unknown indication
     Route: 065
     Dates: start: 202211, end: 202304
  5. DOCETAXEL [Concomitant]
     Active Substance: DOCETAXEL
     Dates: start: 202103

REACTIONS (2)
  - Neoplasm [Unknown]
  - Gastrointestinal disorder [Unknown]
